FAERS Safety Report 21959144 (Version 1)
Quarter: 2023Q1

REPORT INFORMATION
  Report Type: Spontaneous
  Country: US (occurrence: US)
  Receive Date: 20230206
  Receipt Date: 20230206
  Transmission Date: 20230417
  Serious: No
  Sender: FDA-Public Use
  Company Number: US-SA-SAC00000000094624

PATIENT
  Sex: Male

DRUGS (1)
  1. DUPIXENT [Suspect]
     Active Substance: DUPILUMAB
     Dosage: UNK
     Route: 065

REACTIONS (6)
  - Dermatitis atopic [Unknown]
  - Skin plaque [Unknown]
  - Papule [Unknown]
  - Erythema [Unknown]
  - Skin exfoliation [Unknown]
  - Myalgia [Unknown]
